FAERS Safety Report 25268458 (Version 1)
Quarter: 2025Q2

REPORT INFORMATION
  Report Type: Spontaneous
  Country: CN (occurrence: CN)
  Receive Date: 20250505
  Receipt Date: 20250505
  Transmission Date: 20250716
  Serious: Yes (Other)
  Sender: WAYLIS THERAPEUTICS
  Company Number: CN-WAYLIS-2025-CN-000099

PATIENT
  Age: 61 Year
  Sex: Male

DRUGS (4)
  1. RABEPRAZOLE SODIUM [Suspect]
     Active Substance: RABEPRAZOLE SODIUM
     Indication: Helicobacter infection
     Route: 048
     Dates: start: 20250328, end: 20250410
  2. FURAZOLIDONE [Suspect]
     Active Substance: FURAZOLIDONE
     Route: 048
     Dates: start: 20250328, end: 20250410
  3. BISMUTH SUBCITRATE [Suspect]
     Active Substance: BISMUTH SUBCITRATE
     Route: 048
     Dates: start: 20250328, end: 20250410
  4. AMOXICILLIN [Suspect]
     Active Substance: AMOXICILLIN
     Route: 048
     Dates: start: 20250328, end: 20250410

REACTIONS (1)
  - Rash pruritic [Unknown]

NARRATIVE: CASE EVENT DATE: 20250410
